FAERS Safety Report 5476243-5 (Version None)
Quarter: 2007Q4

REPORT INFORMATION
  Report Type: 
  Country: None (occurrence: None)
  Receive Date: 20071003
  Receipt Date: 20070921
  Transmission Date: 20080405
  Serious: Yes (Hospitalization)
  Sender: FDA-Public Use
  Company Number: US-PFIZER INC-2005098874

PATIENT
  Sex: Male
  Weight: 77 kg

DRUGS (7)
  1. SUTENT [Suspect]
     Indication: NON-SMALL CELL LUNG CANCER
     Route: 048
     Dates: start: 20050602, end: 20050630
  2. TESSALON [Concomitant]
     Indication: ILL-DEFINED DISORDER
     Dosage: TEXT:UNKNOWN-FREQ:UNKNOWN
     Route: 048
  3. OXYCODONE HCL [Concomitant]
     Indication: PAIN
     Dosage: TEXT:UNKNOWN-FREQ:UNKNOWN
     Route: 048
  4. NEURONTIN [Concomitant]
     Indication: PERIPHERAL SENSORY NEUROPATHY
     Dosage: TEXT:UNKNOWN-FREQ:UNKNOWN
     Route: 048
  5. SINGULAIR [Concomitant]
     Indication: COUGH
     Dosage: TEXT:UNKNOWN-FREQ:UNKNOWN
     Route: 048
  6. PREDNISONE [Concomitant]
     Indication: COUGH
     Dosage: TEXT:UNKNOWN-FREQ:UNKNOWN
     Route: 048
  7. SCOPOLAMINE [Concomitant]
     Indication: COUGH
     Dosage: TEXT:UNKNOWN-FREQ:UNKNOWN
     Route: 065

REACTIONS (1)
  - DYSPNOEA [None]
